FAERS Safety Report 10011621 (Version 1)
Quarter: 2014Q1

REPORT INFORMATION
  Report Type: Report from Study
  Country: US (occurrence: US)
  Receive Date: 20140314
  Receipt Date: 20140314
  Transmission Date: 20141002
  Serious: Yes (Other)
  Sender: FDA-Public Use
  Company Number: US-ALEXION-A201203069

PATIENT
  Sex: Female

DRUGS (1)
  1. SOLIRIS [Suspect]
     Indication: PAROXYSMAL NOCTURNAL HAEMOGLOBINURIA
     Dosage: UNK
     Route: 042

REACTIONS (6)
  - Transfusion [Unknown]
  - Haemoglobin decreased [Unknown]
  - Arthritis [Unknown]
  - Arthralgia [Unknown]
  - Malaise [Unknown]
  - Fatigue [Unknown]
